FAERS Safety Report 4395560-3 (Version None)
Quarter: 2004Q3

REPORT INFORMATION
  Report Type: 
  Country: None (occurrence: None)
  Receive Date: 20040709
  Receipt Date: 20040625
  Transmission Date: 20050211
  Serious: Yes (Other)
  Sender: FDA-Public Use
  Company Number: USA-2004-0013716

PATIENT
  Age: 51 Year
  Sex: Female

DRUGS (21)
  1. OXYCONTIN [Suspect]
     Indication: PAIN
     Dosage: BID, ORAL
     Route: 048
  2. VIOXX [Concomitant]
  3. ULTRAM [Concomitant]
  4. ZOLOFT [Concomitant]
  5. MIRALAX [Concomitant]
  6. FLAGYL [Concomitant]
  7. PRILOSEC [Concomitant]
  8. PREMARIN [Concomitant]
  9. DIFLUCAN [Concomitant]
  10. PREDNISONE TAB [Concomitant]
  11. METHOTREXATE SODIUM [Concomitant]
  12. NORVASC [Concomitant]
  13. PLENDIL [Concomitant]
  14. TRENTAL ^HOECHST^ (PENTOXIFYLLINE) [Concomitant]
  15. TRANXENE [Concomitant]
  16. FOLIC ACID [Concomitant]
  17. VITAMIN A [Concomitant]
  18. AMBIEN [Concomitant]
  19. CATAPRES [Concomitant]
  20. BUMEX [Concomitant]
  21. OXYCODONE HCL [Concomitant]

REACTIONS (23)
  - AMPUTATION [None]
  - ANXIETY [None]
  - CHEST PAIN [None]
  - CONSTIPATION [None]
  - DEPRESSION [None]
  - DRUG DEPENDENCE [None]
  - DRUG WITHDRAWAL SYNDROME [None]
  - DYSPNOEA [None]
  - GANGRENE [None]
  - GASTROOESOPHAGEAL REFLUX DISEASE [None]
  - GLOSSITIS [None]
  - HAEMATURIA [None]
  - HYPERHIDROSIS [None]
  - INSOMNIA [None]
  - MOOD SWINGS [None]
  - NAUSEA [None]
  - NEPHROLITHIASIS [None]
  - OEDEMA [None]
  - PAIN [None]
  - PHARYNGITIS [None]
  - RASH [None]
  - TREMOR [None]
  - VAGINAL DISCHARGE [None]
